FAERS Safety Report 7517568-9 (Version None)
Quarter: 2011Q2

REPORT INFORMATION
  Report Type: 
  Country: None (occurrence: None)
  Receive Date: 20110601
  Receipt Date: 20110517
  Transmission Date: 20111010
  Serious: Yes (Other)
  Sender: FDA-Public Use
  Company Number: FR-GENENTECH-319329

PATIENT
  Sex: Female

DRUGS (10)
  1. ALUMINUM HYDROXIDE W MAGNESIUM HYDROXIDE [Concomitant]
     Indication: PRODUCT USED FOR UNKNOWN INDICATION
  2. ESOMEPRAZOLE MAGNESIUM [Concomitant]
     Indication: PRODUCT USED FOR UNKNOWN INDICATION
  3. RUPATADINE [Concomitant]
     Indication: PRODUCT USED FOR UNKNOWN INDICATION
  4. LUCENTIS [Suspect]
     Indication: AGE-RELATED MACULAR DEGENERATION
     Dosage: UNK
     Route: 031
     Dates: start: 20110324
  5. LUCENTIS [Suspect]
     Dosage: UNK
     Route: 031
     Dates: start: 20110421
  6. SPIROCTAN [Concomitant]
     Indication: PRODUCT USED FOR UNKNOWN INDICATION
  7. PROPOFAN [Concomitant]
     Indication: PRODUCT USED FOR UNKNOWN INDICATION
  8. LUTENYL [Concomitant]
     Indication: PRODUCT USED FOR UNKNOWN INDICATION
  9. BISOPROLOL FUMARATE [Concomitant]
     Indication: PRODUCT USED FOR UNKNOWN INDICATION
  10. TANAKAN (UNK INGREDIENTS) [Concomitant]
     Indication: PRODUCT USED FOR UNKNOWN INDICATION

REACTIONS (1)
  - THROMBOCYTOPENIA [None]
